FAERS Safety Report 5322416-1 (Version None)
Quarter: 2007Q2

REPORT INFORMATION
  Report Type: 
  Country: None (occurrence: None)
  Receive Date: 20070511
  Receipt Date: 20070430
  Transmission Date: 20071010
  Serious: Yes (Hospitalization, Other)
  Sender: FDA-Public Use
  Company Number: US-AVENTIS-200713261US

PATIENT
  Sex: Male

DRUGS (6)
  1. LANTUS [Suspect]
     Dates: start: 20060501
  2. LANTUS [Suspect]
     Dosage: DOSE: UNK
  3. LANTUS [Suspect]
  4. LANTUS [Suspect]
     Dates: end: 20070501
  5. NOVOLIN R [Suspect]
     Dosage: DOSE: UNK
     Dates: start: 20060101
  6. LILLY REGULAR INSULIN [Concomitant]
     Dosage: DOSE: UNK
     Dates: start: 20070301

REACTIONS (15)
  - BALANCE DISORDER [None]
  - BLOOD GLUCOSE DECREASED [None]
  - BLOOD GLUCOSE INCREASED [None]
  - CARDIAC DISORDER [None]
  - DIZZINESS [None]
  - DRUG INTOLERANCE [None]
  - FALL [None]
  - HEAD INJURY [None]
  - HYPOAESTHESIA [None]
  - HYPOGLYCAEMIC UNCONSCIOUSNESS [None]
  - LOSS OF CONSCIOUSNESS [None]
  - MALAISE [None]
  - PHOBIA [None]
  - STRESS [None]
  - UNEVALUABLE EVENT [None]
